FAERS Safety Report 20809486 (Version 1)
Quarter: 2022Q2

REPORT INFORMATION
  Report Type: Spontaneous
  Country: US (occurrence: None)
  Receive Date: 20220510
  Receipt Date: 20220510
  Transmission Date: 20220720
  Serious: Yes (Hospitalization)
  Sender: FDA-Public Use
  Company Number: None

PATIENT
  Sex: Female
  Weight: 54.5 kg

DRUGS (3)
  1. FULVESTRANT [Suspect]
     Active Substance: FULVESTRANT
  2. FEMARA [Concomitant]
     Active Substance: LETROZOLE
  3. PALBOCICLIB [Concomitant]
     Active Substance: PALBOCICLIB

REACTIONS (6)
  - Bone cancer metastatic [None]
  - Tooth infection [None]
  - Blood calcium increased [None]
  - Blood creatinine increased [None]
  - Fatigue [None]
  - Dental operation [None]

NARRATIVE: CASE EVENT DATE: 20220503
